FAERS Safety Report 5774805-9 (Version None)
Quarter: 2008Q2

REPORT INFORMATION
  Report Type: 
  Country: None (occurrence: None)
  Receive Date: 20080612
  Receipt Date: 20080530
  Transmission Date: 20081010
  Serious: Yes (Hospitalization)
  Sender: FDA-Public Use
  Company Number: US023691

PATIENT
  Age: 53 Year
  Sex: Female

DRUGS (3)
  1. TIAGABINE HCL [Suspect]
     Indication: ANXIETY
     Dosage: 32 MG 32 MG MORNING DOSE ONCE ORAL
     Route: 048
  2. DULOXETINE [Concomitant]
  3. LORAZEPAM [Concomitant]

REACTIONS (4)
  - DRUG SCREEN POSITIVE [None]
  - INTENTIONAL OVERDOSE [None]
  - PUPILLARY REFLEX IMPAIRED [None]
  - STATUS EPILEPTICUS [None]
